FAERS Safety Report 6240612-6 (Version None)
Quarter: 2009Q2

REPORT INFORMATION
  Report Type: 
  Country: None (occurrence: None)
  Receive Date: 20090623
  Receipt Date: 20081104
  Transmission Date: 20091009
  Serious: No
  Sender: FDA-Public Use
  Company Number: US-ASTRAZENECA-2008UW24634

PATIENT
  Age: 53 Year
  Sex: Female
  Weight: 94.3 kg

DRUGS (21)
  1. PULMICORT FLEXHALER [Suspect]
     Indication: ASTHMA
     Dosage: 2 PUFFS DAILY
     Route: 055
     Dates: start: 20081030
  2. MOMETASONE FUROATE [Concomitant]
  3. METROGEL [Concomitant]
  4. EVOXAC [Concomitant]
  5. NEXIUM [Concomitant]
     Route: 048
  6. METFORMIN HCL [Concomitant]
  7. VIVELLE-DOT [Concomitant]
  8. EMBRIL [Concomitant]
  9. KLOR-CON [Concomitant]
  10. FUROSEMIDE [Concomitant]
  11. REVATIO [Concomitant]
  12. NIASPAN ER XL [Concomitant]
  13. TOPROL-XL [Concomitant]
     Route: 048
  14. DIOVAN [Concomitant]
  15. LIPITOR [Concomitant]
  16. SEROVENT [Concomitant]
  17. PROAIR HFA [Concomitant]
  18. TYLENOL (CAPLET) [Concomitant]
  19. VIT. D3 [Concomitant]
  20. REFRESH [Concomitant]
  21. SWIMMERS EAR [Concomitant]
     Indication: EAR PAIN

REACTIONS (1)
  - DYSURIA [None]
